FAERS Safety Report 23349655 (Version 6)
Quarter: 2024Q2

REPORT INFORMATION
  Report Type: Spontaneous
  Country: US (occurrence: US)
  Receive Date: 20231229
  Receipt Date: 20240625
  Transmission Date: 20240716
  Serious: Yes (Hospitalization, Other)
  Sender: FDA-Public Use
  Company Number: US-SA-SAC20231220000373

PATIENT
  Age: 63 Year
  Sex: Female

DRUGS (2)
  1. DUPIXENT [Suspect]
     Active Substance: DUPILUMAB
     Indication: Asthma
     Dosage: 600 MG, 1X
     Route: 058
     Dates: start: 20231127, end: 20231127
  2. DUPIXENT [Suspect]
     Active Substance: DUPILUMAB
     Dosage: 300 MG, QOW
     Route: 058
     Dates: start: 202312, end: 202404

REACTIONS (22)
  - Intestinal perforation [Recovered/Resolved]
  - Sepsis [Unknown]
  - Thrombosis [Recovered/Resolved]
  - Cardiac disorder [Unknown]
  - Condition aggravated [Unknown]
  - Illness [Unknown]
  - Impaired gastric emptying [Unknown]
  - Condition aggravated [Unknown]
  - Visual impairment [Unknown]
  - Condition aggravated [Unknown]
  - Injection site nodule [Recovered/Resolved]
  - Injection site pustule [Unknown]
  - Weight decreased [Unknown]
  - Gastrooesophageal reflux disease [Unknown]
  - Condition aggravated [Unknown]
  - Decreased appetite [Unknown]
  - Condition aggravated [Unknown]
  - Dyspnoea [Unknown]
  - Blood pressure abnormal [Not Recovered/Not Resolved]
  - Oedema [Unknown]
  - Rash [Not Recovered/Not Resolved]
  - Drug ineffective [Unknown]

NARRATIVE: CASE EVENT DATE: 20230101
